FAERS Safety Report 10051728 (Version 2)
Quarter: 2014Q2

REPORT INFORMATION
  Report Type: Spontaneous
  Country: US (occurrence: US)
  Receive Date: 20140401
  Receipt Date: 20140520
  Transmission Date: 20141212
  Serious: Yes (Hospitalization, Disabling, Other)
  Sender: FDA-Public Use
  Company Number: PHHY2014US037641

PATIENT
  Sex: Female

DRUGS (10)
  1. BACLOFEN INTRATHECAL [Suspect]
     Indication: MUSCLE SPASTICITY
     Dosage: UNK UKN, UNK
     Route: 039
  2. PAMELOR [Suspect]
     Dosage: UNK UKN, UNK
  3. AMITRIPTYLINE [Suspect]
     Dosage: UNK UKN, UNK
  4. CLONIDINE [Suspect]
     Dosage: UNK UKN, UNK
     Route: 037
  5. BUPIVACAINE [Suspect]
     Dosage: UNK UKN, UNK
     Route: 037
  6. LYRICA [Suspect]
     Dosage: UNK UKN, UNK
  7. PROPOFOL [Suspect]
     Dosage: UNK UKN, UNK
  8. NEURONTIN [Suspect]
     Dosage: UNK UKN, UNK
  9. ROZEREM [Suspect]
     Indication: SLEEP DISORDER
     Dosage: UNK UKN, UNK
     Route: 048
  10. VERSED [Suspect]
     Dosage: UNK UKN, UNK

REACTIONS (30)
  - Circadian rhythm sleep disorder [Unknown]
  - Blood cortisol abnormal [Unknown]
  - Diabetes mellitus [Unknown]
  - Drug hypersensitivity [Unknown]
  - Fear [Unknown]
  - Gastrooesophageal reflux disease [Unknown]
  - Infection [Unknown]
  - Loss of control of legs [Unknown]
  - Multiple sclerosis [Unknown]
  - Hypoaesthesia [Unknown]
  - Obesity [Unknown]
  - Clitoral engorgement [Unknown]
  - Thyroid function test abnormal [Unknown]
  - Weight increased [Unknown]
  - Mobility decreased [Unknown]
  - Vulvovaginal burning sensation [Unknown]
  - Vaginismus [Unknown]
  - Spinal disorder [Unknown]
  - Cystitis interstitial [Unknown]
  - Spinal column injury [Unknown]
  - Disease progression [Unknown]
  - Pain in extremity [Unknown]
  - Pruritus [Unknown]
  - Pain [Unknown]
  - Back pain [Unknown]
  - Spinal pain [Unknown]
  - Muscle spasticity [Unknown]
  - Impaired gastric emptying [Unknown]
  - Urinary retention [Unknown]
  - No therapeutic response [Unknown]
